FAERS Safety Report 8512848-2 (Version None)
Quarter: 2012Q3

REPORT INFORMATION
  Report Type: 
  Country: None (occurrence: None)
  Receive Date: 20120716
  Receipt Date: 20120713
  Transmission Date: 20120928
  Serious: Yes (Hospitalization)
  Sender: FDA-Public Use
  Company Number: US-B.I. PHARMACEUTICALS,INC./RIDGEFIELD-2012-BP-14908BP

PATIENT
  Sex: Female
  Weight: 108.2 kg

DRUGS (17)
  1. IBUPROFEN [Concomitant]
     Indication: PAIN IN EXTREMITY
  2. ASPIRIN [Concomitant]
     Indication: PROPHYLAXIS
     Dosage: 81 MG
     Route: 048
     Dates: start: 20050701
  3. SINGULAIR [Concomitant]
     Indication: ASTHMA
     Dosage: 10 MG
     Route: 048
     Dates: start: 20090101
  4. LAMICTAL [Concomitant]
     Indication: BIPOLAR DISORDER
     Dosage: 300 MG
     Route: 048
     Dates: start: 20050101
  5. MULTI-VITAMIN [Concomitant]
     Indication: ROUTINE HEALTH MAINTENANCE
     Route: 048
     Dates: start: 20120515
  6. VYTORIN [Concomitant]
     Indication: HYPERCHOLESTEROLAEMIA
     Route: 048
     Dates: start: 20090101
  7. VITAMIN D [Concomitant]
     Indication: VITAMIN D DEFICIENCY
     Dosage: 5000 U
     Route: 048
     Dates: start: 20080801
  8. TRAZODONE HCL [Concomitant]
     Indication: BIPOLAR DISORDER
     Dosage: 100 MG
     Route: 048
     Dates: start: 20090101
  9. IBUPROFEN [Concomitant]
     Indication: MUSCULOSKELETAL PAIN
     Route: 048
     Dates: start: 20120523
  10. TOPAMAX [Concomitant]
     Indication: MIGRAINE
     Dosage: 25 MG
     Route: 048
     Dates: start: 20120316
  11. CLONAZEPAM [Concomitant]
     Indication: ANXIETY
     Route: 048
     Dates: start: 20050601
  12. PULMICORT [Concomitant]
     Indication: ASTHMA
     Dosage: 720 MCG
     Route: 055
     Dates: start: 20111121
  13. GAVISCON [Concomitant]
     Indication: GASTROOESOPHAGEAL REFLUX DISEASE
     Route: 048
     Dates: start: 19900101
  14. EXCEDRIN (MIGRAINE) [Concomitant]
     Indication: MIGRAINE
     Route: 048
     Dates: start: 20050701
  15. CYMBALTA [Concomitant]
     Indication: BIPOLAR DISORDER
     Dosage: 120 MG
     Route: 048
     Dates: start: 19930301
  16. PROAIR HFA [Concomitant]
     Indication: ASTHMA
     Route: 055
     Dates: start: 20111219
  17. TIOTROPIUM BROMIDE [Suspect]
     Indication: ASTHMA
     Dosage: 5 MCG
     Route: 055
     Dates: start: 20120410, end: 20120630

REACTIONS (1)
  - COLITIS [None]
